FAERS Safety Report 6724560-0 (Version None)
Quarter: 2010Q2

REPORT INFORMATION
  Report Type: 
  Country: None (occurrence: None)
  Receive Date: 20100513
  Receipt Date: 20100503
  Transmission Date: 20101027
  Serious: Yes (Hospitalization)
  Sender: FDA-Public Use
  Company Number: ES-WYE-H15055010

PATIENT
  Age: 86 Year
  Sex: Male

DRUGS (6)
  1. TRANGOREX [Suspect]
     Indication: ATRIAL FIBRILLATION
     Route: 048
     Dates: start: 20080212, end: 20081115
  2. SUTRIL [Interacting]
     Indication: HYPERTENSION
     Route: 048
     Dates: end: 20081115
  3. DIGOXIN [Interacting]
     Indication: ATRIAL FIBRILLATION
     Route: 048
     Dates: start: 20080212, end: 20081115
  4. ENALAPRIL MALEATE [Interacting]
     Indication: HYPERTENSION
     Route: 048
     Dates: end: 20081115
  5. PRAVASTATIN [Concomitant]
  6. TAMSULOSIN HYDROCHLORIDE [Concomitant]

REACTIONS (3)
  - DRUG INTERACTION [None]
  - NODAL RHYTHM [None]
  - RENAL FAILURE ACUTE [None]
